FAERS Safety Report 6413461-3 (Version None)
Quarter: 2009Q4

REPORT INFORMATION
  Report Type: 
  Country: None (occurrence: None)
  Receive Date: 20091026
  Receipt Date: 20091014
  Transmission Date: 20100525
  Serious: Yes (Other)
  Sender: FDA-Public Use
  Company Number: FR-AVENTIS-200916332EU

PATIENT
  Sex: Male

DRUGS (2)
  1. INDAPAMIDE [Suspect]
     Indication: HYPERTENSION
     Dosage: DOSE: UNK
  2. ENALAPRIL MALEATE [Suspect]
     Indication: HYPERTENSION
     Dosage: DOSE: UNK

REACTIONS (2)
  - POLYNEUROPATHY [None]
  - VITAMIN B12 DEFICIENCY [None]
